FAERS Safety Report 13377649 (Version 2)
Quarter: 2017Q2

REPORT INFORMATION
  Report Type: Report from Study
  Country: FR (occurrence: FR)
  Receive Date: 20170328
  Receipt Date: 20170512
  Transmission Date: 20170830
  Serious: Yes (Hospitalization, Other)
  Sender: FDA-Public Use
  Company Number: FR-GILEAD-2017-0263841

PATIENT
  Age: 80 Year
  Sex: Female
  Weight: 53 kg

DRUGS (10)
  1. SPASMIN                            /00068602/ [Concomitant]
  2. KARDEGIC [Concomitant]
     Active Substance: ASPIRIN LYSINE
     Dosage: 75 MG, QD
     Dates: start: 2011
  3. LOPRAZOLAM [Concomitant]
     Active Substance: LOPRAZOLAM
  4. OLYSIO [Concomitant]
     Active Substance: SIMEPREVIR
     Dosage: UNK
     Route: 065
     Dates: start: 20141216, end: 20141230
  5. SOFOSBUVIR [Suspect]
     Active Substance: SOFOSBUVIR
     Indication: HEPATITIS C
     Dosage: 400 MG, QD
     Route: 065
     Dates: start: 20140923, end: 20141216
  6. OMEPRAZOLE. [Concomitant]
     Active Substance: OMEPRAZOLE
     Indication: DYSPEPSIA
     Dosage: 20 MG, QD
     Dates: start: 2011
  7. CALTRATE                           /00944201/ [Concomitant]
     Active Substance: CALCIUM CARBONATE\CHOLECALCIFEROL
     Dosage: 600 MG, QD
     Dates: start: 2012
  8. SOFOSBUVIR [Suspect]
     Active Substance: SOFOSBUVIR
     Dosage: UNK
     Route: 065
     Dates: start: 20141216, end: 20141230
  9. LOSARTAN. [Concomitant]
     Active Substance: LOSARTAN
     Indication: HYPERTENSION
     Dosage: 50 MG, QD
     Dates: start: 2004
  10. OLYSIO [Concomitant]
     Active Substance: SIMEPREVIR
     Indication: HEPATITIS C
     Dosage: 150 MG, QD
     Route: 065
     Dates: start: 20140923, end: 20141216

REACTIONS (1)
  - Hepatocellular carcinoma [Unknown]

NARRATIVE: CASE EVENT DATE: 20151203
